FAERS Safety Report 19086119 (Version 2)
Quarter: 2021Q2

REPORT INFORMATION
  Report Type: Spontaneous
  Country: ES (occurrence: ES)
  Receive Date: 20210402
  Receipt Date: 20210429
  Transmission Date: 20210717
  Serious: Yes (Other)
  Sender: FDA-Public Use
  Company Number: ES-REGENERON PHARMACEUTICALS, INC.-2021-39177

PATIENT

DRUGS (1)
  1. EYLEA [Suspect]
     Active Substance: AFLIBERCEPT
     Indication: MACULAR OEDEMA
     Dosage: 1 DF, ONCE, OS ? 1ST INJECTION; LAST ONE PRIOR TO THE EVENT
     Route: 031
     Dates: start: 20201006, end: 20201006

REACTIONS (4)
  - Intraocular pressure increased [Unknown]
  - Wrong technique in product usage process [Unknown]
  - Device use issue [Unknown]
  - Amaurosis fugax [Recovered/Resolved]

NARRATIVE: CASE EVENT DATE: 20210311
